FAERS Safety Report 8235704-6 (Version None)
Quarter: 2012Q1

REPORT INFORMATION
  Report Type: 
  Country: None (occurrence: None)
  Receive Date: 20120326
  Receipt Date: 20120313
  Transmission Date: 20120608
  Serious: Yes (Hospitalization)
  Sender: FDA-Public Use
  Company Number: PHHY2012AU021310

PATIENT
  Age: 57 Year
  Sex: Male

DRUGS (1)
  1. GILENYA [Suspect]
     Route: 048
     Dates: start: 20111001, end: 20120310

REACTIONS (7)
  - PROGRESSIVE MULTIFOCAL LEUKOENCEPHALOPATHY [None]
  - MALAISE [None]
  - ANXIETY [None]
  - HEMIANOPIA [None]
  - CENTRAL NERVOUS SYSTEM LESION [None]
  - VISUAL IMPAIRMENT [None]
  - MUSCULAR WEAKNESS [None]
